FAERS Safety Report 5131386-0 (Version None)
Quarter: 2006Q4

REPORT INFORMATION
  Report Type: 
  Country: None (occurrence: None)
  Receive Date: 20061020
  Receipt Date: 20061011
  Transmission Date: 20070319
  Serious: Yes (Death, Hospitalization)
  Sender: FDA-Public Use
  Company Number: US-GLAXOSMITHKLINE-A0623449A

PATIENT
  Age: 50 Year
  Sex: Male

DRUGS (4)
  1. ADVAIR HFA [Suspect]
     Indication: ASTHMA
     Route: 055
     Dates: start: 20031007
  2. NORMODYNE [Concomitant]
     Indication: HYPERTENSION
     Route: 048
     Dates: end: 20041019
  3. ATACAND [Concomitant]
  4. VENTOLIN [Concomitant]

REACTIONS (3)
  - ASTHMA [None]
  - BRONCHOSPASM [None]
  - CARDIO-RESPIRATORY ARREST [None]
